FAERS Safety Report 10911251 (Version 1)
Quarter: 2015Q1

REPORT INFORMATION
  Report Type: Spontaneous
  Country: US (occurrence: US)
  Receive Date: 20150312
  Receipt Date: 20150312
  Transmission Date: 20150721
  Serious: Yes (Hospitalization, Other)
  Sender: FDA-Public Use
  Company Number: US-MYLANLABS-2015M1007925

PATIENT

DRUGS (6)
  1. TRIFLUOPERAZINE [Concomitant]
     Active Substance: TRIFLUOPERAZINE\TRIFLUOPERAZINE HYDROCHLORIDE
     Route: 065
  2. CLOMIPRAMINE [Suspect]
     Active Substance: CLOMIPRAMINE
     Route: 065
  3. DULOXETINE [Suspect]
     Active Substance: DULOXETINE
     Route: 065
  4. BENZATROPINE [Concomitant]
     Active Substance: BENZTROPINE
     Route: 065
  5. FENTANYL. [Suspect]
     Active Substance: FENTANYL
     Route: 065
  6. OXYCODONE [Suspect]
     Active Substance: OXYCODONE
     Route: 065

REACTIONS (1)
  - Serotonin syndrome [Recovered/Resolved]
